FAERS Safety Report 10735300 (Version 1)
Quarter: 2015Q1

REPORT INFORMATION
  Report Type: Spontaneous
  Country: US (occurrence: US)
  Receive Date: 20150125
  Receipt Date: 20150125
  Transmission Date: 20150721
  Serious: Yes (Life-Threatening, Hospitalization)
  Sender: FDA-Public Use
  Company Number: US-JNJFOC-20150105694

PATIENT
  Age: 45 Year
  Sex: Male

DRUGS (1)
  1. TYLENOL EXTRA STRENGTH [Suspect]
     Active Substance: ACETAMINOPHEN
     Indication: SUICIDE ATTEMPT
     Dosage: 100 TABLETS, ONCE
     Route: 048
     Dates: start: 200505

REACTIONS (6)
  - Nausea [Unknown]
  - Abdominal pain [Unknown]
  - Intentional overdose [Unknown]
  - Vomiting [Unknown]
  - Diarrhoea [Unknown]
  - Transaminases increased [Recovering/Resolving]

NARRATIVE: CASE EVENT DATE: 200505
